FAERS Safety Report 23509932 (Version 1)
Quarter: 2024Q1

REPORT INFORMATION
  Report Type: Spontaneous
  Country: US (occurrence: US)
  Receive Date: 20240211
  Receipt Date: 20240211
  Transmission Date: 20240409
  Serious: Yes (Hospitalization)
  Sender: FDA-Public Use
  Company Number: US-ACTELION-A-NJ2015-119977

PATIENT
  Age: 20 Year
  Sex: Female

DRUGS (6)
  1. OPSUMIT [Suspect]
     Active Substance: MACITENTAN
     Indication: Pulmonary arterial hypertension
     Dosage: 10 MG, QD
     Route: 048
     Dates: start: 20141112, end: 20150616
  2. VELETRI [Suspect]
     Active Substance: EPOPROSTENOL
     Indication: Pulmonary arterial hypertension
     Route: 042
  3. REMODULIN [Concomitant]
     Active Substance: TREPROSTINIL
  4. TREPROSTINIL DIOLAMINE [Concomitant]
     Active Substance: TREPROSTINIL DIOLAMINE
  5. ADCIRCA [Concomitant]
     Active Substance: TADALAFIL
  6. WARFARIN [Concomitant]
     Active Substance: WARFARIN

REACTIONS (5)
  - Premature delivery [Recovered/Resolved]
  - Caesarean section [Unknown]
  - Coma [Recovered/Resolved]
  - Illness [Unknown]
  - Exposure during pregnancy [Recovered/Resolved]

NARRATIVE: CASE EVENT DATE: 20150616
